FAERS Safety Report 20919923 (Version 1)
Quarter: 2022Q2

REPORT INFORMATION
  Report Type: Spontaneous
  Country: JP (occurrence: JP)
  Receive Date: 20220606
  Receipt Date: 20220606
  Transmission Date: 20220721
  Serious: Yes (Other)
  Sender: FDA-Public Use
  Company Number: JP-Eisai-202202712_DVG_P_1

PATIENT
  Sex: Male

DRUGS (2)
  1. LUNESTA [Suspect]
     Active Substance: ESZOPICLONE
     Dosage: DOSE UNKNOWN
     Route: 048
     Dates: end: 20220501
  2. DAYVIGO [Suspect]
     Active Substance: LEMBOREXANT
     Route: 048
     Dates: start: 20220502, end: 20220502

REACTIONS (2)
  - Arrhythmia [Unknown]
  - Tinnitus [Not Recovered/Not Resolved]

NARRATIVE: CASE EVENT DATE: 20220503
